FAERS Safety Report 6425244-9 (Version None)
Quarter: 2009Q4

REPORT INFORMATION
  Report Type: 
  Country: None (occurrence: None)
  Receive Date: 20091030
  Receipt Date: 20091030
  Transmission Date: 20100525
  Serious: Yes (Death)
  Sender: FDA-Public Use
  Company Number: None

PATIENT
  Age: 42 Year
  Sex: Male
  Weight: 45 kg

DRUGS (11)
  1. TRUVADA [Suspect]
     Indication: HIV INFECTION
     Dosage: 500 MG QD ORAL
     Route: 048
     Dates: start: 20090623, end: 20091009
  2. EFAVIRENZ [Suspect]
     Indication: HIV INFECTION
     Dosage: 600 MG QD ORAL
     Route: 048
     Dates: start: 20090623, end: 20091009
  3. ZIDOVUDINE [Concomitant]
  4. LAMIVUDINE [Concomitant]
  5. LOPINAVIR [Concomitant]
  6. TRIMETHROPRINE-SULFAMETHOXASOLE [Concomitant]
  7. CLINDAMYCIN [Concomitant]
  8. ISONIAZID [Concomitant]
  9. RIFAMPICIN [Concomitant]
  10. PYRAZINAMIDE [Concomitant]
  11. ETHAMBUTOL HYDROCHLORIDE [Concomitant]

REACTIONS (8)
  - AIDS ENCEPHALOPATHY [None]
  - ENCEPHALITIS [None]
  - HEMIPARESIS [None]
  - HYDROCEPHALUS [None]
  - INTRACRANIAL PRESSURE INCREASED [None]
  - NON-HODGKIN'S LYMPHOMA [None]
  - PNEUMONIA [None]
  - STATUS EPILEPTICUS [None]
